FAERS Safety Report 6299216 (Version 3)
Quarter: 2017Q3

REPORT INFORMATION
  Report Type: Spontaneous
  Country: US (occurrence: US)
  Receive Date: 20070428
  Receipt Date: 20170925
  Transmission Date: 20171128
  Serious: Yes (Other)
  Sender: FDA-Public Use
  Company Number: US-PFIZER INC-2007031461

PATIENT
  Age: 45 Year
  Sex: Male

DRUGS (2)
  1. BEXTRA [Suspect]
     Active Substance: VALDECOXIB
     Indication: ARTHRITIS
     Dosage: 10 MG, 1X/DAY
     Dates: start: 20020702, end: 20020801
  2. CELEBREX [Suspect]
     Active Substance: CELECOXIB
     Indication: ARTHRITIS
     Dosage: 200 MG, 1X/DAY
     Dates: start: 20001201, end: 20030620

REACTIONS (2)
  - Ischaemic stroke [Unknown]
  - Depression [Unknown]

NARRATIVE: CASE EVENT DATE: 20030818
